FAERS Safety Report 4495198-3 (Version None)
Quarter: 2004Q4

REPORT INFORMATION
  Report Type: 
  Country: None (occurrence: None)
  Receive Date: 20041103
  Receipt Date: 20041020
  Transmission Date: 20050328
  Serious: Yes (Hospitalization)
  Sender: FDA-Public Use
  Company Number: 1997-UP-00090

PATIENT
  Age: 50 Year
  Sex: Male

DRUGS (6)
  1. PRAMIPEXOLE (PRAMIPEXOLE HYDROCHLORIDE) [Suspect]
     Indication: PARKINSON'S DISEASE
     Dosage: PO
     Route: 048
     Dates: start: 19961204, end: 20010822
  2. SELEGELINE HYDROCHLORIDE [Concomitant]
  3. RANITIDINE [Concomitant]
  4. FLONASE [Concomitant]
  5. VITAMIN E [Concomitant]
  6. VITAMIN C (ASCORBIC ACID) [Concomitant]

REACTIONS (4)
  - LACERATION [None]
  - LIBIDO INCREASED [None]
  - PENILE HAEMORRHAGE [None]
  - PENIS DISORDER [None]
